FAERS Safety Report 6670686-X (Version None)
Quarter: 2010Q2

REPORT INFORMATION
  Report Type: 
  Country: None (occurrence: None)
  Receive Date: 20100405
  Receipt Date: 20100322
  Transmission Date: 20101027
  Serious: Yes (Other)
  Sender: FDA-Public Use
  Company Number: 20100128

PATIENT
  Age: 73 Year
  Sex: Female

DRUGS (1)
  1. PHENYLEPHRINE HCL [Suspect]
     Dosage: UNKNOWN INJECTION NOS

REACTIONS (2)
  - GENERAL PHYSICAL HEALTH DETERIORATION [None]
  - REVERSIBLE POSTERIOR LEUKOENCEPHALOPATHY SYNDROME [None]
